FAERS Safety Report 5816662-8 (Version None)
Quarter: 2008Q3

REPORT INFORMATION
  Report Type: 
  Country: None (occurrence: None)
  Receive Date: 20080721
  Receipt Date: 20080715
  Transmission Date: 20090109
  Serious: Yes (Hospitalization)
  Sender: FDA-Public Use
  Company Number: US-PFIZER INC-2008048800

PATIENT
  Sex: Male

DRUGS (3)
  1. SOLU-MEDROL [Suspect]
     Indication: MULTIPLE SCLEROSIS
     Dosage: FREQ:FREQUENCY: 1 IN 3 MONTHS
  2. REBIF [Suspect]
     Indication: MULTIPLE SCLEROSIS
     Dosage: DAILY DOSE:44MCG
     Route: 058
  3. IMMUNOGLOBULINS [Suspect]
     Indication: MULTIPLE SCLEROSIS
     Dosage: DAILY DOSE:3-FREQ:FREQUENCY: 1 IN 3 MONTHS
     Route: 042

REACTIONS (2)
  - ATRIAL FIBRILLATION [None]
  - HEADACHE [None]
